FAERS Safety Report 5391367-9 (Version None)
Quarter: 2007Q3

REPORT INFORMATION
  Report Type: 
  Country: None (occurrence: None)
  Receive Date: 20070716
  Receipt Date: 20070716
  Transmission Date: 20080115
  Serious: No
  Sender: FDA-Public Use
  Company Number: None

PATIENT
  Age: 38 Year
  Sex: Male

DRUGS (2)
  1. GABAPENTIN [Suspect]
     Dosage: CAPSULE
  2. GABAPENTIN [Suspect]
     Dosage: CAPSULE

REACTIONS (4)
  - DRUG DISPENSING ERROR [None]
  - INCORRECT DRUG DOSAGE FORM ADMINISTERED [None]
  - LETHARGY [None]
  - UNRESPONSIVE TO STIMULI [None]
